FAERS Safety Report 6745620-4 (Version None)
Quarter: 2010Q2

REPORT INFORMATION
  Report Type: 
  Country: None (occurrence: None)
  Receive Date: 20100528
  Receipt Date: 20100519
  Transmission Date: 20101027
  Serious: Yes (Hospitalization)
  Sender: FDA-Public Use
  Company Number: JP-JNJFOC-20100509500

PATIENT
  Age: 36 Year
  Sex: Male

DRUGS (1)
  1. TOPINA TABLETS [Suspect]
     Indication: EPILEPSY
     Route: 048

REACTIONS (2)
  - APPENDICITIS [None]
  - INTESTINAL OBSTRUCTION [None]
